FAERS Safety Report 20790137 (Version 2)
Quarter: 2022Q2

REPORT INFORMATION
  Report Type: Report from Study
  Country: CA (occurrence: CA)
  Receive Date: 20220505
  Receipt Date: 20220510
  Transmission Date: 20220721
  Serious: Yes (Other)
  Sender: FDA-Public Use
  Company Number: CA-ABBVIE-22K-028-4367848-00

PATIENT
  Sex: Male

DRUGS (1)
  1. HUMIRA [Suspect]
     Active Substance: ADALIMUMAB
     Indication: Crohn^s disease
     Route: 058
     Dates: start: 20150124

REACTIONS (20)
  - Large intestine perforation [Unknown]
  - Renal failure [Unknown]
  - Osteonecrosis [Not Recovered/Not Resolved]
  - Hepatic failure [Unknown]
  - Irritable bowel syndrome [Unknown]
  - Osteoporosis [Unknown]
  - Psychotic disorder [Unknown]
  - Tearfulness [Not Recovered/Not Resolved]
  - Illness [Unknown]
  - Emotional distress [Unknown]
  - Dehydration [Unknown]
  - Crohn^s disease [Not Recovered/Not Resolved]
  - Hypophagia [Unknown]
  - Malnutrition [Unknown]
  - Communication disorder [Unknown]
  - Illness [Unknown]
  - Arthritis [Unknown]
  - Internal injury [Unknown]
  - Fibromyalgia [Unknown]
  - Neuralgia [Not Recovered/Not Resolved]
